FAERS Safety Report 6666969-X (Version None)
Quarter: 2010Q2

REPORT INFORMATION
  Report Type: 
  Country: None (occurrence: None)
  Receive Date: 20100405
  Receipt Date: 20100330
  Transmission Date: 20101027
  Serious: Yes (Death, Hospitalization, Other)
  Sender: FDA-Public Use
  Company Number: PHHY2010GB04875

PATIENT
  Sex: Female

DRUGS (7)
  1. IMATINIB [Suspect]
     Indication: GASTROINTESTINAL STROMAL TUMOUR
     Dosage: UNK
     Dates: start: 20010101, end: 20091001
  2. NILOTINIB [Suspect]
     Dosage: UNK
     Dates: start: 20100122
  3. RAMIPRIL [Concomitant]
     Indication: HYPERTENSION
     Dosage: 2.5 MG, QD
     Route: 048
  4. FOLIC ACID [Concomitant]
     Indication: ANAEMIA
     Dosage: 5 MG, QD
     Route: 048
  5. DOMPERIDONE [Concomitant]
     Indication: NAUSEA
     Dosage: 20 MG, QDS
     Route: 048
  6. ONDANSETRON [Concomitant]
     Indication: NAUSEA
     Dosage: 8 MG, TID
     Route: 048
  7. AMLODIPINE [Concomitant]
     Indication: HYPERTENSION
     Dosage: 5 MG, QD
     Route: 048

REACTIONS (7)
  - ABDOMINAL PAIN [None]
  - CIRCULATORY COLLAPSE [None]
  - GASTROINTESTINAL STROMAL TUMOUR [None]
  - INTESTINAL HAEMORRHAGE [None]
  - INTESTINAL PERFORATION [None]
  - MALIGNANT NEOPLASM PROGRESSION [None]
  - THERAPY CESSATION [None]
